FAERS Safety Report 19589736 (Version 2)
Quarter: 2021Q3

REPORT INFORMATION
  Report Type: Spontaneous
  Country: JP (occurrence: JM)
  Receive Date: 20210721
  Receipt Date: 20210825
  Transmission Date: 20211014
  Serious: No
  Sender: FDA-Public Use
  Company Number: JP-ASTRAZENECA-2021A585409

PATIENT

DRUGS (1)
  1. SYMBICORT [Suspect]
     Active Substance: BUDESONIDE\FORMOTEROL FUMARATE DIHYDRATE
     Dosage: 160/4.5, 2 DOSAGE FORM, EVERY DAY
     Route: 055

REACTIONS (4)
  - Drug ineffective [Unknown]
  - Device malfunction [Unknown]
  - Off label use [Unknown]
  - Asthma [Unknown]
